FAERS Safety Report 21984192 (Version 4)
Quarter: 2023Q1

REPORT INFORMATION
  Report Type: Report from Study
  Country: US (occurrence: US)
  Receive Date: 20230213
  Receipt Date: 20230324
  Transmission Date: 20230418
  Serious: No
  Sender: FDA-Public Use
  Company Number: US-002147023-NVSC2023US026387

PATIENT
  Age: 23 Year
  Sex: Female

DRUGS (2)
  1. KESIMPTA [Suspect]
     Active Substance: OFATUMUMAB
     Indication: Multiple sclerosis
     Dosage: 20 MG/KG, QMO
     Route: 058
     Dates: start: 20221229
  2. KESIMPTA [Suspect]
     Active Substance: OFATUMUMAB
     Dosage: UNK
     Route: 065
     Dates: start: 20230226

REACTIONS (8)
  - Illness [Not Recovered/Not Resolved]
  - Injection site pain [Recovering/Resolving]
  - Cough [Unknown]
  - Nausea [Unknown]
  - Injection site extravasation [Unknown]
  - Pain in extremity [Not Recovered/Not Resolved]
  - Depression [Recovering/Resolving]
  - Wrong technique in device usage process [Unknown]

NARRATIVE: CASE EVENT DATE: 20221229
